FAERS Safety Report 6000195-2 (Version None)
Quarter: 2008Q4

REPORT INFORMATION
  Report Type: 
  Country: None (occurrence: None)
  Receive Date: 20081215
  Receipt Date: 20081214
  Transmission Date: 20090506
  Serious: Yes (Death, Other)
  Sender: FDA-Public Use
  Company Number: US-PFIZER INC-2008088544

PATIENT
  Sex: Male
  Weight: 127 kg

DRUGS (4)
  1. CELEBREX [Suspect]
     Indication: POLYARTHRITIS
     Dates: start: 20040401
  2. CELEBREX [Suspect]
     Indication: PAIN
  3. BEXTRA [Suspect]
     Dates: start: 20050207
  4. VIOXX [Concomitant]

REACTIONS (1)
  - MYOCARDIAL INFARCTION [None]
